FAERS Safety Report 24147512 (Version 1)
Quarter: 2024Q3

REPORT INFORMATION
  Report Type: Report from Study
  Country: CO (occurrence: CO)
  Receive Date: 20240729
  Receipt Date: 20240729
  Transmission Date: 20241017
  Serious: Yes (Life-Threatening, Hospitalization)
  Sender: BIOVITRUM
  Company Number: CO-AstraZeneca-2023A139570

PATIENT
  Age: 158 Day
  Sex: Male
  Weight: 10.2 kg

DRUGS (1)
  1. SYNAGIS [Suspect]
     Active Substance: PALIVIZUMAB
     Indication: Antiviral prophylaxis
     Dosage: 15MG/KG MONTHLY
     Route: 030
     Dates: start: 20221122, end: 20230316

REACTIONS (2)
  - Hypersensitivity [Not Recovered/Not Resolved]
  - Asthmatic crisis [Not Recovered/Not Resolved]

NARRATIVE: CASE EVENT DATE: 20230316
